FAERS Safety Report 12161920 (Version 1)
Quarter: 2016Q1

REPORT INFORMATION
  Report Type: Spontaneous
  Country: HR (occurrence: HR)
  Receive Date: 20160309
  Receipt Date: 20160309
  Transmission Date: 20160526
  Serious: Yes (Other)
  Sender: FDA-Public Use
  Company Number: HR-TEVA-640066ACC

PATIENT
  Age: 63 Year
  Sex: Male

DRUGS (5)
  1. NITROGLYCERIN. [Interacting]
     Active Substance: NITROGLYCERIN
     Indication: ANGINA PECTORIS
     Route: 060
  2. ATORVASTATIN CALCIUM. [Concomitant]
     Active Substance: ATORVASTATIN CALCIUM
  3. DILTIAZEM [Interacting]
     Active Substance: DILTIAZEM
     Indication: ANGINA PECTORIS
     Route: 065
  4. ATENOLOL. [Concomitant]
     Active Substance: ATENOLOL
  5. DINAMICO [Suspect]
     Active Substance: SILDENAFIL CITRATE
     Route: 065

REACTIONS (7)
  - Blood pressure decreased [Recovered/Resolved]
  - Nausea [Recovered/Resolved]
  - Chest pain [Recovered/Resolved]
  - Drug interaction [Recovered/Resolved]
  - Prescription drug used without a prescription [None]
  - Dizziness [Recovered/Resolved]
  - Electrocardiogram ST segment depression [Recovered/Resolved]
